FAERS Safety Report 13841516 (Version 1)
Quarter: 2017Q3

REPORT INFORMATION
  Report Type: Spontaneous
  Country: US (occurrence: US)
  Receive Date: 20170807
  Receipt Date: 20170807
  Transmission Date: 20171127
  Serious: Yes (Other)
  Sender: FDA-Public Use
  Company Number: US-PFIZER INC-2017305282

PATIENT
  Age: 14 Year
  Sex: Female
  Weight: 33.11 kg

DRUGS (2)
  1. GENOTROPIN [Suspect]
     Active Substance: SOMATROPIN
     Indication: CHRONIC KIDNEY DISEASE
  2. GENOTROPIN [Suspect]
     Active Substance: SOMATROPIN
     Indication: BODY HEIGHT BELOW NORMAL
     Dosage: 1.4 MG, 1X/DAY
     Route: 058
     Dates: start: 201504, end: 20170219

REACTIONS (2)
  - Product use in unapproved indication [Unknown]
  - Diabetes mellitus [Unknown]
